FAERS Safety Report 5617251-0 (Version None)
Quarter: 2008Q1

REPORT INFORMATION
  Report Type: 
  Country: None (occurrence: None)
  Receive Date: 20080207
  Receipt Date: 20070711
  Transmission Date: 20080703
  Serious: Yes (Death, Life-Threatening, Hospitalization, Disabling)
  Sender: FDA-Public Use
  Company Number: US-BAYER-BG-2006-010115

PATIENT
  Age: 70 Year
  Sex: Female
  Weight: 60 kg

DRUGS (27)
  1. FLUDARABINE PHOSPHATE [Suspect]
     Indication: CHRONIC LYMPHOCYTIC LEUKAEMIA
     Dosage: UNIT DOSE: 48 MG
     Route: 042
     Dates: start: 20051018, end: 20060322
  2. MABCAMPATH 10 [Suspect]
     Indication: CHRONIC LYMPHOCYTIC LEUKAEMIA
     Dosage: UNIT DOSE: 30 MG
     Route: 042
     Dates: start: 20051018, end: 20060322
  3. RINGER [Concomitant]
     Indication: HYPOTENSION
     Route: 042
     Dates: start: 20060423
  4. ETHAMSYLATE [Concomitant]
     Indication: THROMBOCYTOPENIA
     Route: 042
     Dates: start: 20060423
  5. FAMOTIDINE [Concomitant]
     Indication: PROPHYLAXIS AGAINST GASTROINTESTINAL ULCER
     Route: 042
     Dates: start: 20060423
  6. PLATELETS [Concomitant]
     Indication: THROMBOCYTOPENIA
     Route: 042
     Dates: start: 20060423
  7. RED BLOOD CELLS [Concomitant]
     Indication: ANAEMIA
     Route: 042
     Dates: start: 20060423
  8. METHYLPREDNISOLONE [Concomitant]
     Indication: THROMBOCYTOPENIA
     Route: 042
     Dates: start: 20060425, end: 20060502
  9. METHYLPREDNISOLONE [Concomitant]
     Route: 042
     Dates: start: 20060502
  10. PLASMA [Concomitant]
     Indication: HYPOALBUMINAEMIA
     Dates: start: 20060424
  11. MEDOCEF [Concomitant]
  12. NOVPHILLIN [Concomitant]
  13. DEXAMETHASONE TAB [Concomitant]
  14. BROMHEXIN [Concomitant]
  15. TAVIPEC (EXPECTORANT) [Concomitant]
  16. EGILOK [Concomitant]
     Indication: MYOCARDIAL ISCHAEMIA
     Route: 048
     Dates: start: 20020101, end: 20060605
  17. PREDNISOLONE F [Concomitant]
     Dosage: UNIT DOSE: 5 MG
  18. AZATRIL [Concomitant]
  19. FUNGOLON [Concomitant]
  20. NYTROLONG [Concomitant]
     Indication: MYOCARDIAL ISCHAEMIA
     Route: 048
     Dates: start: 20020101, end: 20060605
  21. DIGOXIN [Concomitant]
  22. SODIUM CHLORIDE 0.9% [Concomitant]
  23. LENOGRASTIM [Concomitant]
  24. SOLU-MEDROL [Concomitant]
  25. DEXTROSE [Concomitant]
  26. CORTICOSTEROIDS [Concomitant]
  27. VITAMINS [Concomitant]

REACTIONS (7)
  - BICYTOPENIA [None]
  - CARDIOVASCULAR INSUFFICIENCY [None]
  - HEPATITIS [None]
  - MUCOSAL INFLAMMATION [None]
  - PANCYTOPENIA [None]
  - SKIN EXFOLIATION [None]
  - THROMBOCYTOPENIA [None]
